FAERS Safety Report 24315659 (Version 1)
Quarter: 2024Q3

REPORT INFORMATION
  Report Type: Report from Study
  Country: US (occurrence: US)
  Receive Date: 20240913
  Receipt Date: 20240913
  Transmission Date: 20241017
  Serious: Yes (Hospitalization, Other)
  Sender: JOHNSON AND JOHNSON
  Company Number: US-JNJFOC-20240452533

PATIENT
  Age: 47 Year
  Sex: Female

DRUGS (6)
  1. SPRAVATO [Suspect]
     Active Substance: ESKETAMINE
     Indication: Depression
     Dosage: ^56 MG, 1 TOTAL DOSE^, ALSO CONFLICTINGLY REPORTED AS START DATE OF 31-JAN-2024.
     Dates: start: 20240126, end: 20240126
  2. SPRAVATO [Suspect]
     Active Substance: ESKETAMINE
     Indication: Anxiety
     Dosage: ^84 MG, 23 TOTAL DOSES^
     Dates: start: 20240129, end: 20240502
  3. SPRAVATO [Suspect]
     Active Substance: ESKETAMINE
     Dosage: ^112 MG, 1 TOTAL DOSE^, ALSO CONFLICTINGLY DOSE WAS REPORTED AS 84 MG.
     Dates: start: 20240510, end: 20240510
  4. CYMBALTA [Suspect]
     Active Substance: DULOXETINE HYDROCHLORIDE
     Route: 065
  5. LEXAPRO [Suspect]
     Active Substance: ESCITALOPRAM OXALATE
     Route: 065
  6. CLONAZEPAM [Concomitant]
     Active Substance: CLONAZEPAM
     Route: 065

REACTIONS (7)
  - Fear [Not Recovered/Not Resolved]
  - Suicidal ideation [Unknown]
  - Suicide attempt [Unknown]
  - Dissociation [Unknown]
  - Cognitive disorder [Unknown]
  - Anxiety [Unknown]
  - Product dose omission issue [Unknown]

NARRATIVE: CASE EVENT DATE: 20240101
